FAERS Safety Report 6807624-2 (Version None)
Quarter: 2010Q2

REPORT INFORMATION
  Report Type: 
  Country: None (occurrence: None)
  Receive Date: 20100629
  Receipt Date: 20090526
  Transmission Date: 20101027
  Serious: Yes (Other)
  Sender: FDA-Public Use
  Company Number: US-PFIZER INC-2008082887

PATIENT
  Sex: Male
  Weight: 71.8 kg

DRUGS (9)
  1. TIKOSYN [Suspect]
     Indication: ATRIAL FIBRILLATION
     Dosage: 250 UG, 2X/DAY
     Route: 048
     Dates: start: 20070801, end: 20090101
  2. TIKOSYN [Interacting]
     Indication: SUPRAVENTRICULAR TACHYCARDIA
  3. HYDROCODONE [Interacting]
     Indication: NERVE COMPRESSION
     Dates: start: 20080930
  4. NORTRIPTYLINE [Interacting]
     Indication: NERVE COMPRESSION
     Dates: start: 20080930
  5. ATENOLOL [Concomitant]
     Dosage: 12.5 MG, 2X/DAY
     Route: 048
  6. DIOVANE [Concomitant]
     Indication: BLOOD PRESSURE
     Dosage: 80 MG, 1X/DAY
     Route: 048
  7. ASACOL [Concomitant]
     Dosage: 400 MG, 3X/DAY
  8. PROTONIX [Concomitant]
     Dosage: 20 MG, 1X/DAY
     Route: 048
  9. XANAX [Concomitant]
     Dosage: 0.25 MG, 1X/DAY
     Route: 048

REACTIONS (6)
  - DRUG INEFFECTIVE [None]
  - DRUG INTERACTION [None]
  - OEDEMA PERIPHERAL [None]
  - SUPRAVENTRICULAR EXTRASYSTOLES [None]
  - TACHYCARDIA [None]
  - VENTRICULAR EXTRASYSTOLES [None]
